FAERS Safety Report 23088184 (Version 4)
Quarter: 2023Q4

REPORT INFORMATION
  Report Type: Spontaneous
  Country: IT (occurrence: IT)
  Receive Date: 20231020
  Receipt Date: 20231208
  Transmission Date: 20240110
  Serious: Yes (Life-Threatening, Hospitalization, Other)
  Sender: FDA-Public Use
  Company Number: None

PATIENT
  Age: 58 Year
  Sex: Female
  Weight: 58 kg

DRUGS (6)
  1. BISACODYL [Suspect]
     Active Substance: BISACODYL
     Indication: Constipation
     Dosage: BISACODYL 5 MG ORALLY
     Route: 048
     Dates: start: 20231002, end: 20231003
  2. TRAMADOL HYDROCHLORIDE [Suspect]
     Active Substance: TRAMADOL HYDROCHLORIDE
     Indication: Postoperative analgesia
     Dosage: TRAMADOL 100 MG X 3 INTRAVENOUSLY
     Route: 042
     Dates: start: 20230929, end: 20231003
  3. CEFAZOLIN [Suspect]
     Active Substance: CEFAZOLIN
     Indication: Blood culture positive
     Dosage: CEFAZOLIN 2 GRAMS IV X 3 DAILY
     Route: 042
     Dates: start: 20231002, end: 20231003
  4. LEVETIRACETAM [Suspect]
     Active Substance: LEVETIRACETAM
     Indication: Epilepsy
     Dosage: LEVETIRACETAM 500 MG BOLUS IV ON THE AFTERNOON OF 02 OCT 2023 LEVETIRACETAM 500 MG ORALLY ON THE EVE
     Route: 042
     Dates: start: 20231002, end: 20231004
  5. LEVETIRACETAM [Suspect]
     Active Substance: LEVETIRACETAM
     Indication: Epilepsy
  6. FUROSEMIDE [Suspect]
     Active Substance: FUROSEMIDE
     Indication: Cardiac failure
     Dosage: FUROSEMIDE 20 MG X 3 DAILY
     Route: 065
     Dates: start: 20231002, end: 20231003

REACTIONS (2)
  - Torsade de pointes [Recovered/Resolved]
  - Ventricular fibrillation [Recovered/Resolved]

NARRATIVE: CASE EVENT DATE: 20231003
